FAERS Safety Report 12683909 (Version 2)
Quarter: 2016Q3

REPORT INFORMATION
  Report Type: Spontaneous
  Country: JP (occurrence: JP)
  Receive Date: 20160825
  Receipt Date: 20160913
  Transmission Date: 20161109
  Serious: Yes (Hospitalization)
  Sender: FDA-Public Use
  Company Number: JP-ELI_LILLY_AND_COMPANY-JP201608010314

PATIENT
  Age: 63 Year
  Sex: Male
  Weight: 63 kg

DRUGS (5)
  1. 5 FU [Concomitant]
     Active Substance: FLUOROURACIL
     Indication: RECTAL CANCER
     Dosage: 710 MG/BODY, DAY1
     Route: 040
     Dates: start: 20160808, end: 20160808
  2. LEVOFOLINATE [Concomitant]
     Active Substance: LEVOLEUCOVORIN CALCIUM
     Indication: RECTAL CANCER
     Dosage: 300 MG/BODY, DAY1
     Route: 042
     Dates: start: 20160808, end: 20160808
  3. IRINOTECAN [Concomitant]
     Active Substance: IRINOTECAN
     Indication: RECTAL CANCER
     Dosage: 210 MG/BODY, DAY1
     Route: 042
     Dates: start: 20160808, end: 20160808
  4. 5 FU [Concomitant]
     Active Substance: FLUOROURACIL
     Dosage: 4000 MG/BODY, DAY1-3
     Route: 042
     Dates: start: 20160808, end: 20160810
  5. CYRAMZA [Suspect]
     Active Substance: RAMUCIRUMAB
     Indication: RECTAL CANCER
     Dosage: 500 MG/BODY, DAY1
     Route: 042
     Dates: start: 20160808, end: 20160808

REACTIONS (1)
  - Diverticulitis [Recovering/Resolving]

NARRATIVE: CASE EVENT DATE: 20160816
